FAERS Safety Report 7716187-9 (Version None)
Quarter: 2011Q3

REPORT INFORMATION
  Report Type: 
  Country: None (occurrence: None)
  Receive Date: 20110829
  Receipt Date: 20110823
  Transmission Date: 20111222
  Serious: Yes (Hospitalization)
  Sender: FDA-Public Use
  Company Number: DE-AMGEN-DEUNI2011040947

PATIENT
  Age: 76 Year
  Sex: Male

DRUGS (3)
  1. PANITUMUMAB [Suspect]
     Indication: COLORECTAL CANCER
     Dosage: 470 MG, Q2WK
     Route: 042
     Dates: start: 20100615, end: 20100824
  2. TORSEMIDE [Concomitant]
     Indication: OEDEMA
     Dosage: 5 MG, UNK
     Route: 048
     Dates: start: 20100615, end: 20100624
  3. ROZEX [Concomitant]
     Indication: DERMATITIS
     Dosage: UNK
     Route: 061
     Dates: end: 20100624

REACTIONS (2)
  - PYREXIA [None]
  - INFECTION [None]
